FAERS Safety Report 21963565 (Version 1)
Quarter: 2023Q1

REPORT INFORMATION
  Report Type: Spontaneous
  Country: None (occurrence: US)
  Receive Date: 20230207
  Receipt Date: 20230207
  Transmission Date: 20230418
  Serious: No
  Sender: FDA-Public Use
  Company Number: US-Harrow Eye-2137633

PATIENT
  Age: 75 Year
  Sex: Female

DRUGS (1)
  1. IOPIDINE [Suspect]
     Active Substance: APRACLONIDINE HYDROCHLORIDE
     Route: 047

REACTIONS (5)
  - Eye injury [Unknown]
  - Incorrect dose administered [Unknown]
  - Vision blurred [Unknown]
  - Drug ineffective [Unknown]
  - Product dose omission issue [Unknown]
